FAERS Safety Report 11982196 (Version 1)
Quarter: 2016Q1

REPORT INFORMATION
  Report Type: Spontaneous
  Country: US (occurrence: None)
  Receive Date: 20160129
  Receipt Date: 20160129
  Transmission Date: 20160526
  Serious: Yes (Hospitalization)
  Sender: FDA-Public Use
  Company Number: None

PATIENT
  Age: 58 Year
  Sex: Female
  Weight: 52.3 kg

DRUGS (9)
  1. ADVAIR DISKUS [Concomitant]
     Active Substance: FLUTICASONE PROPIONATE\SALMETEROL XINAFOATE
  2. ROXICODONE [Suspect]
     Active Substance: OXYCODONE HYDROCHLORIDE
     Indication: PAIN
     Dosage: CHRONIC
     Route: 048
  3. COREG [Concomitant]
     Active Substance: CARVEDILOL
  4. COMBIVENT [Concomitant]
     Active Substance: ALBUTEROL SULFATE\IPRATROPIUM BROMIDE
  5. ZANAFLEX [Concomitant]
     Active Substance: TIZANIDINE HYDROCHLORIDE
  6. MVI [Concomitant]
     Active Substance: VITAMINS
  7. ECOTRIN [Concomitant]
     Active Substance: ASPIRIN
  8. MS CONTIN [Suspect]
     Active Substance: MORPHINE SULFATE
     Indication: PAIN
     Dosage: CHRONIC
     Route: 048
  9. PRINIVIL [Concomitant]
     Active Substance: LISINOPRIL

REACTIONS (7)
  - Dehydration [None]
  - Acidosis [None]
  - Lethargy [None]
  - Sedation [None]
  - Mental status changes [None]
  - Pneumonia [None]
  - Hypotension [None]

NARRATIVE: CASE EVENT DATE: 20150617
